FAERS Safety Report 25736118 (Version 2)
Quarter: 2025Q4

REPORT INFORMATION
  Report Type: Spontaneous
  Country: US (occurrence: US)
  Receive Date: 20250828
  Receipt Date: 20251224
  Transmission Date: 20260118
  Serious: No
  Sender: SANOFI AVENTIS
  Company Number: US-SA-2025SA255168

PATIENT
  Age: 77 Year
  Sex: Female

DRUGS (2)
  1. DUPIXENT [Suspect]
     Active Substance: DUPILUMAB
     Indication: Dermatitis atopic
     Dosage: 300 MG, QOW
     Route: 058
  2. BRUKINSA [Concomitant]
     Active Substance: ZANUBRUTINIB

REACTIONS (7)
  - Ear infection [Unknown]
  - Contusion [Unknown]
  - Ear discomfort [Unknown]
  - Head discomfort [Unknown]
  - Pruritus [Unknown]
  - Dizziness [Unknown]
  - Eczema [Unknown]
